FAERS Safety Report 7959926-4 (Version None)
Quarter: 2011Q4

REPORT INFORMATION
  Report Type: 
  Country: None (occurrence: None)
  Receive Date: 20111130
  Receipt Date: 20111115
  Transmission Date: 20120403
  Serious: Yes (Disabling)
  Sender: FDA-Public Use
  Company Number: 2011P1010641

PATIENT
  Age: 3 Year
  Sex: Male

DRUGS (3)
  1. ALBUTEROL [Concomitant]
  2. DEXAMETHASONE SODIUM POSPHATE [Suspect]
     Indication: DYSPNOEA
     Dosage: 9 MG;X1;PO
     Route: 048
     Dates: start: 20111113, end: 20111113
  3. MOTRIN [Concomitant]

REACTIONS (3)
  - ABASIA [None]
  - WEIGHT BEARING DIFFICULTY [None]
  - INCORRECT ROUTE OF DRUG ADMINISTRATION [None]
